FAERS Safety Report 5047152-0 (Version None)
Quarter: 2006Q3

REPORT INFORMATION
  Report Type: 
  Country: None (occurrence: None)
  Receive Date: 20060703
  Receipt Date: 20060609
  Transmission Date: 20061208
  Serious: Yes (Other)
  Sender: FDA-Public Use
  Company Number: 6023328

PATIENT
  Age: 56 Year
  Sex: Female

DRUGS (4)
  1. BISOPROLOL FUMARATE [Suspect]
     Indication: HYPERTENSION
     Dosage: 2,5 MG (2,5 MG, 1 IN 1 D), ORAL
     Route: 048
     Dates: start: 20041006, end: 20060606
  2. DIOVAN COMP FORTE                     (HYDROCHLOROTHIAZIDE, VALSARTAN) [Concomitant]
  3. ZANIDIP                (LERCANIDIPINE HYDROCHLORIDE) [Concomitant]
  4. THYROXIN                     (LEVOTHYROXINE SODIUM) [Concomitant]

REACTIONS (3)
  - EAR DISCOMFORT [None]
  - HEARING IMPAIRED [None]
  - TINNITUS [None]
